FAERS Safety Report 22286936 (Version 1)
Quarter: 2023Q2

REPORT INFORMATION
  Report Type: Spontaneous
  Country: FR (occurrence: FR)
  Receive Date: 20230505
  Receipt Date: 20230505
  Transmission Date: 20230721
  Serious: Yes (Hospitalization, Other)
  Sender: FDA-Public Use
  Company Number: FR-RECORDATI-2023002180

PATIENT
  Age: 8 Year
  Sex: Male

DRUGS (2)
  1. AMOXICILLIN [Suspect]
     Active Substance: AMOXICILLIN
     Indication: Tonsillitis
     Dosage: UNK
     Route: 065
     Dates: start: 20230410, end: 20230411
  2. BICLOTYMOL [Suspect]
     Active Substance: BICLOTYMOL
     Indication: Tonsillitis
     Dosage: 6 DOSAGE FORM, ONCE A DAY (2 DOSAGE FORM, TID)
     Route: 065
     Dates: start: 20230410, end: 20230411

REACTIONS (3)
  - Angioedema [Recovering/Resolving]
  - Pharyngeal paraesthesia [Recovering/Resolving]
  - Product label issue [Recovered/Resolved]

NARRATIVE: CASE EVENT DATE: 20230401
